FAERS Safety Report 18425150 (Version 1)
Quarter: 2020Q4

REPORT INFORMATION
  Report Type: Report from Study
  Country: MX (occurrence: MX)
  Receive Date: 20201026
  Receipt Date: 20201026
  Transmission Date: 20210114
  Serious: Yes (Other)
  Sender: FDA-Public Use
  Company Number: PHHY2019MX161603

PATIENT
  Age: 68 Year
  Sex: Female
  Weight: 58 kg

DRUGS (1)
  1. GALVUS MET [Suspect]
     Active Substance: METFORMIN HYDROCHLORIDE\VILDAGLIPTIN
     Indication: DIABETES MELLITUS
     Dosage: 1 DF, BID (50 MG VILDAGLIPTIN, 500 MG METFORMIN HYDROCHLORIDE)
     Route: 048

REACTIONS (9)
  - Discomfort [Recovering/Resolving]
  - Neuropathy peripheral [Recovering/Resolving]
  - Gait disturbance [Not Recovered/Not Resolved]
  - Diabetic neuropathy [Not Recovered/Not Resolved]
  - Burning sensation [Recovering/Resolving]
  - Muscular weakness [Not Recovered/Not Resolved]
  - Eating disorder [Recovering/Resolving]
  - Arthralgia [Not Recovered/Not Resolved]
  - Pain in extremity [Recovering/Resolving]

NARRATIVE: CASE EVENT DATE: 20190615
